FAERS Safety Report 7383579-X (Version None)
Quarter: 2011Q1

REPORT INFORMATION
  Report Type: 
  Country: None (occurrence: None)
  Receive Date: 20110330
  Receipt Date: 20110325
  Transmission Date: 20110831
  Serious: Yes (Hospitalization)
  Sender: FDA-Public Use
  Company Number: IE-MEDIMMUNE-MEDI-0012988

PATIENT
  Sex: Male

DRUGS (5)
  1. IRON [Concomitant]
  2. FUROSEMIDE [Concomitant]
  3. KAPSOVIT [Concomitant]
  4. SYNAGIS [Suspect]
     Indication: HEART DISEASE CONGENITAL
     Route: 030
     Dates: start: 20101208
  5. SPIRONOLACTONE [Concomitant]

REACTIONS (1)
  - CARDIAC OPERATION [None]
